FAERS Safety Report 7118517-8 (Version None)
Quarter: 2010Q4

REPORT INFORMATION
  Report Type: 
  Country: None (occurrence: None)
  Receive Date: 20101123
  Receipt Date: 20100927
  Transmission Date: 20110411
  Serious: No
  Sender: FDA-Public Use
  Company Number: US-MYLANLABS-2010S1016491

PATIENT
  Age: 47 Year
  Sex: Female
  Weight: 68.49 kg

DRUGS (3)
  1. CLONAZEPAM [Suspect]
     Indication: MULTIPLE SCLEROSIS
     Route: 048
     Dates: start: 20100501
  2. CLONAZEPAM [Suspect]
     Indication: CONVULSION
     Route: 048
     Dates: start: 20100501
  3. CLONAZEPAM [Suspect]
     Indication: ANXIETY
     Route: 048
     Dates: start: 20100501

REACTIONS (3)
  - DYSGEUSIA [None]
  - EYE IRRITATION [None]
  - RASH [None]
